FAERS Safety Report 4374447-6 (Version None)
Quarter: 2004Q2

REPORT INFORMATION
  Report Type: 
  Country: None (occurrence: None)
  Receive Date: 20040602
  Receipt Date: 20040314
  Transmission Date: 20050107
  Serious: No
  Sender: FDA-Public Use
  Company Number: 200415554BWH

PATIENT
  Sex: Male

DRUGS (1)
  1. LEVITRA [Suspect]

REACTIONS (1)
  - ARTHRALGIA [None]
